FAERS Safety Report 11337018 (Version 3)
Quarter: 2018Q3

REPORT INFORMATION
  Report Type: Spontaneous
  Country: US (occurrence: US)
  Receive Date: 20150804
  Receipt Date: 20180907
  Transmission Date: 20181010
  Serious: No
  Sender: FDA-Public Use
  Company Number: US-ELI_LILLY_AND_COMPANY-US201507011221

PATIENT
  Sex: Male

DRUGS (3)
  1. HUMALOG [Suspect]
     Active Substance: INSULIN LISPRO
     Indication: TYPE 2 DIABETES MELLITUS
     Dosage: 16 U, EACH MORNING
     Route: 065
     Dates: start: 2012
  2. HUMALOG [Suspect]
     Active Substance: INSULIN LISPRO
     Dosage: 26 U, EACH EVENING
     Route: 065
     Dates: start: 2012
  3. HUMALOG [Suspect]
     Active Substance: INSULIN LISPRO
     Dosage: 18 U, QD
     Route: 065
     Dates: start: 2012

REACTIONS (1)
  - Incorrect dose administered [Unknown]
